FAERS Safety Report 6842049-5 (Version None)
Quarter: 2010Q3

REPORT INFORMATION
  Report Type: 
  Country: None (occurrence: None)
  Receive Date: 20100709
  Receipt Date: 20100624
  Transmission Date: 20110219
  Serious: Yes (Hospitalization)
  Sender: FDA-Public Use
  Company Number: 2010MA000192

PATIENT
  Sex: Female

DRUGS (3)
  1. DICLOFENAC SODIUM EXTENDED-RELEASE TABLETS, 100 MG (PUREPAC) (DICLOFEN [Suspect]
  2. LANSOPRAZOLE [Concomitant]
  3. PARACETAMOL [Concomitant]

REACTIONS (7)
  - DEPRESSION [None]
  - MUSCLE ATROPHY [None]
  - PIGMENTATION DISORDER [None]
  - RENAL FAILURE CHRONIC [None]
  - SEPSIS [None]
  - URINARY TRACT INFECTION [None]
  - WEIGHT DECREASED [None]
